FAERS Safety Report 8333618-4 (Version None)
Quarter: 2012Q2

REPORT INFORMATION
  Report Type: 
  Country: None (occurrence: None)
  Receive Date: 20120503
  Receipt Date: 20120423
  Transmission Date: 20120825
  Serious: Yes (Other)
  Sender: FDA-Public Use
  Company Number: GB-ABBOTT-12P-167-0916678-00

PATIENT
  Sex: Female

DRUGS (9)
  1. HUMIRA [Suspect]
     Indication: RHEUMATOID ARTHRITIS
     Dates: end: 20120119
  2. DEPO-MEDROL [Concomitant]
     Indication: PRODUCT USED FOR UNKNOWN INDICATION
     Route: 030
  3. LIDOCAINE [Concomitant]
     Indication: PRODUCT USED FOR UNKNOWN INDICATION
  4. HUMIRA [Suspect]
  5. ATENOLOL [Concomitant]
     Indication: PRODUCT USED FOR UNKNOWN INDICATION
  6. CANDESARTAN CILEXETIL [Concomitant]
     Indication: PRODUCT USED FOR UNKNOWN INDICATION
  7. LEFLUNOMIDE [Concomitant]
     Indication: PRODUCT USED FOR UNKNOWN INDICATION
  8. METHOTREXATE [Concomitant]
     Indication: PRODUCT USED FOR UNKNOWN INDICATION
  9. SULFASALAZINE [Concomitant]
     Indication: PRODUCT USED FOR UNKNOWN INDICATION
     Dates: end: 20120115

REACTIONS (18)
  - PAIN [None]
  - ARTHRITIS [None]
  - PSORIATIC ARTHROPATHY [None]
  - JOINT EFFUSION [None]
  - CARDIAC FAILURE [None]
  - JOINT SWELLING [None]
  - JOINT RANGE OF MOTION DECREASED [None]
  - PULMONARY FIBROSIS [None]
  - COUGH [None]
  - ARTHRALGIA [None]
  - PSORIASIS [None]
  - MALAISE [None]
  - FATIGUE [None]
  - DECREASED APPETITE [None]
  - INFLAMMATION [None]
  - CARDIAC DISORDER [None]
  - DYSPNOEA [None]
  - NAUSEA [None]
